FAERS Safety Report 5908088-3 (Version None)
Quarter: 2008Q4

REPORT INFORMATION
  Report Type: 
  Country: None (occurrence: None)
  Receive Date: 20081003
  Receipt Date: 20080922
  Transmission Date: 20090506
  Serious: Yes (Other)
  Sender: FDA-Public Use
  Company Number: PE-PFIZER INC-2008080077

PATIENT
  Age: 34 Year
  Sex: Female

DRUGS (1)
  1. LYRICA [Suspect]
     Dosage: DAILY DOSE:75MG

REACTIONS (2)
  - MENTAL STATUS CHANGES [None]
  - SUICIDE ATTEMPT [None]
